FAERS Safety Report 23919375 (Version 1)
Quarter: 2024Q2

REPORT INFORMATION
  Report Type: Spontaneous
  Country: US (occurrence: US)
  Receive Date: 20240530
  Receipt Date: 20240530
  Transmission Date: 20240716
  Serious: Yes (Death, Other)
  Sender: FDA-Public Use
  Company Number: US-HIKMA PHARMACEUTICALS USA INC.-US-H14001-24-04301

PATIENT

DRUGS (20)
  1. AZACITIDINE [Suspect]
     Active Substance: AZACITIDINE
     Indication: Product used for unknown indication
     Dosage: 150 MILLIGRAM
     Route: 065
  2. BLEOMYCIN [Suspect]
     Active Substance: BLEOMYCIN SULFATE
     Indication: Product used for unknown indication
     Dosage: UNKNOWN
     Route: 065
  3. BLINATUMOMAB [Suspect]
     Active Substance: BLINATUMOMAB
     Indication: Product used for unknown indication
     Dosage: UNKNOWN
     Route: 065
  4. CYTARABINE [Suspect]
     Active Substance: CYTARABINE
     Indication: Product used for unknown indication
     Dosage: UNKNOWN
     Route: 065
  5. DASATINIB [Suspect]
     Active Substance: DASATINIB
     Indication: Product used for unknown indication
     Dosage: 50 MILLIGRAM
     Route: 065
  6. DECITABINE [Suspect]
     Active Substance: DECITABINE
     Indication: Product used for unknown indication
     Dosage: UNKNOWN
     Route: 065
  7. DUVELISIB [Suspect]
     Active Substance: DUVELISIB
     Indication: Product used for unknown indication
     Dosage: UNKNOWN
     Route: 065
  8. GEMCITABINE [Suspect]
     Active Substance: GEMCITABINE
     Indication: Product used for unknown indication
     Dosage: UNKNOWN
     Route: 041
  9. GILTERITINIB [Suspect]
     Active Substance: GILTERITINIB
     Indication: Product used for unknown indication
     Dosage: UNKNOWN
     Route: 065
  10. IBRUTINIB [Suspect]
     Active Substance: IBRUTINIB
     Indication: Product used for unknown indication
     Dosage: UNKNOWN
     Route: 065
  11. ICLUSIG [Suspect]
     Active Substance: PONATINIB\PONATINIB HYDROCHLORIDE
     Indication: Product used for unknown indication
     Dosage: UNKNOWN
     Route: 065
  12. IMATINIB [Suspect]
     Active Substance: IMATINIB
     Dosage: 100 MILLIGRAM
     Route: 065
  13. IMATINIB [Suspect]
     Active Substance: IMATINIB
     Indication: Product used for unknown indication
     Dosage: UNKNOWN
     Route: 065
  14. MELPHALAN [Suspect]
     Active Substance: MELPHALAN
     Indication: Product used for unknown indication
     Dosage: UNKNOWN
     Route: 065
  15. METHOTREXATE [Suspect]
     Active Substance: METHOTREXATE
     Indication: Product used for unknown indication
     Dosage: UNKNOWN
     Route: 065
  16. NILOTINIB [Suspect]
     Active Substance: NILOTINIB
     Indication: Product used for unknown indication
     Dosage: UNKNOWN
     Route: 065
  17. NIVOLUMAB [Suspect]
     Active Substance: NIVOLUMAB
     Indication: Product used for unknown indication
     Dosage: UNKNOWN
     Route: 065
  18. RITUXIMAB [Suspect]
     Active Substance: RITUXIMAB
     Indication: Product used for unknown indication
     Dosage: UNKNOWN
     Route: 065
  19. SIROLIMUS [Suspect]
     Active Substance: SIROLIMUS
     Indication: Product used for unknown indication
     Dosage: UNKNOWN
     Route: 065
  20. TACROLIMUS [Suspect]
     Active Substance: TACROLIMUS
     Indication: Product used for unknown indication
     Dosage: UNKNOWN
     Route: 065

REACTIONS (17)
  - Bronchiolitis [Fatal]
  - Tumour cell mobilisation [Fatal]
  - Interstitial lung disease [Fatal]
  - Lung infiltration [Fatal]
  - Hypersensitivity [Fatal]
  - Dyspnoea [Fatal]
  - Radiation fibrosis - lung [Fatal]
  - Pulmonary oedema [Fatal]
  - Autoimmune disorder [Fatal]
  - Blood creatinine abnormal [Fatal]
  - Non-cardiogenic pulmonary oedema [Fatal]
  - Body temperature increased [Fatal]
  - Chest pain [Fatal]
  - Pulmonary hypertension [Fatal]
  - Pulmonary vascular disorder [Fatal]
  - White blood cell count abnormal [Fatal]
  - Pneumonia [Fatal]
